FAERS Safety Report 25606710 (Version 1)
Quarter: 2025Q3

REPORT INFORMATION
  Report Type: Spontaneous
  Country: TR (occurrence: TR)
  Receive Date: 20250725
  Receipt Date: 20250725
  Transmission Date: 20251020
  Serious: Yes (Hospitalization)
  Sender: AMGEN
  Company Number: TR-AMGEN-TURSP2025142013

PATIENT
  Age: 62 Year
  Sex: Female

DRUGS (3)
  1. PROLIA [Suspect]
     Active Substance: DENOSUMAB
     Indication: Osteoporosis
     Dosage: 60 MILLIGRAM PER MILLILITRE, Q6MO
     Route: 058
  2. FERRIC CARBOXYMALTOSE [Concomitant]
     Active Substance: FERRIC CARBOXYMALTOSE
     Indication: Iron deficiency anaemia
     Route: 040
  3. IRON [Concomitant]
     Active Substance: IRON
     Indication: Mineral supplementation
     Route: 048

REACTIONS (11)
  - Lethargy [Recovered/Resolved]
  - Chest discomfort [Recovered/Resolved]
  - Respiratory distress [Recovered/Resolved]
  - Paraesthesia oral [Recovered/Resolved]
  - Paraesthesia [Recovered/Resolved]
  - Muscle spasms [Recovered/Resolved]
  - Fatigue [Recovered/Resolved]
  - Hypophosphataemia [Recovered/Resolved]
  - Respiratory alkalosis [Recovered/Resolved]
  - Supraventricular tachycardia [Recovered/Resolved]
  - Hypocalcaemia [Recovered/Resolved]
